FAERS Safety Report 8774755 (Version 1)
Quarter: 2012Q4

REPORT INFORMATION
  Report Type: 
  Country: US (occurrence: US)
  Receive Date: 20120910
  Receipt Date: 20120910
  Transmission Date: 20130627
  Serious: No
  Sender: FDA-Public Use
  Company Number: US-PFIZER INC-2012220612

PATIENT
  Age: 41 Year
  Sex: Male
  Weight: 89.34 kg

DRUGS (4)
  1. GEODON [Suspect]
     Indication: MENTAL IMPAIRMENT
     Dosage: 80 mg, 2x/day
     Route: 048
     Dates: start: 20120826, end: 20120903
  2. METHADONE [Concomitant]
     Indication: BACK PAIN
     Dosage: UNK
  3. CITALOPRAM [Concomitant]
     Dosage: UNK
  4. DIAZEPAM [Concomitant]
     Dosage: 5 mg, UNK

REACTIONS (1)
  - Tremor [Not Recovered/Not Resolved]
